FAERS Safety Report 8520259-9 (Version None)
Quarter: 2012Q3

REPORT INFORMATION
  Report Type: 
  Country: None (occurrence: None)
  Receive Date: 20120719
  Receipt Date: 20120711
  Transmission Date: 20120928
  Serious: Yes (Life-Threatening, Hospitalization)
  Sender: FDA-Public Use
  Company Number: US-UCBSA-059786

PATIENT
  Age: 46 Year
  Sex: Female
  Weight: 77.1 kg

DRUGS (8)
  1. WELLBUTRIN [Concomitant]
  2. SOMA [Concomitant]
  3. VISTARIL [Concomitant]
  4. KLONOPIN [Concomitant]
  5. OXYCONTIN [Concomitant]
     Indication: SURGERY
     Dosage: UNKNOWN DOSE
     Dates: start: 20120425
  6. METFORMIN HYDROCHLORIDE [Concomitant]
     Dates: start: 20110601
  7. POLYETHYLENE GLYCOL [Suspect]
     Indication: CONSTIPATION
     Dosage: POWDER
     Route: 048
     Dates: start: 20120428, end: 20120504
  8. MORPHINE [Concomitant]
     Indication: SURGERY
     Dosage: UNKNOWN DOSE
     Dates: start: 20120101

REACTIONS (2)
  - PULMONARY THROMBOSIS [None]
  - ANAPHYLACTIC SHOCK [None]
